FAERS Safety Report 9224734 (Version 1)
Quarter: 2013Q2

REPORT INFORMATION
  Report Type: Spontaneous
  Country: US (occurrence: None)
  Receive Date: 20130409
  Receipt Date: 20130409
  Transmission Date: 20140414
  Serious: No
  Sender: FDA-Public Use
  Company Number: None

PATIENT
  Age: 21 Year
  Sex: Female

DRUGS (2)
  1. TOPIRAMATE [Suspect]
     Indication: CONVULSION
     Dates: start: 200908
  2. TOPIRAMATE [Suspect]
     Indication: MIGRAINE
     Dates: start: 200908

REACTIONS (2)
  - Convulsion [None]
  - Product substitution issue [None]
